APPROVED DRUG PRODUCT: FOMEPIZOLE
Active Ingredient: FOMEPIZOLE
Strength: 1.5GM/1.5ML (1GM/ML)
Dosage Form/Route: INJECTABLE;INJECTION
Application: A078639 | Product #001 | TE Code: AP
Applicant: MYLAN INSTITUTIONAL LLC
Approved: Mar 3, 2008 | RLD: No | RS: Yes | Type: RX